FAERS Safety Report 15165398 (Version 1)
Quarter: 2018Q3

REPORT INFORMATION
  Report Type: Report from Study
  Country: DE (occurrence: DE)
  Receive Date: 20180719
  Receipt Date: 20180719
  Transmission Date: 20181010
  Serious: Yes (Hospitalization)
  Sender: FDA-Public Use
  Company Number: DE-JNJFOC-20180718020

PATIENT
  Age: 3 Decade
  Sex: Male

DRUGS (3)
  1. SIMPONI [Suspect]
     Active Substance: GOLIMUMAB
     Indication: AXIAL SPONDYLOARTHRITIS
     Route: 058
     Dates: start: 20171201
  2. ETORICOXIB. [Suspect]
     Active Substance: ETORICOXIB
     Indication: AXIAL SPONDYLOARTHRITIS
     Route: 065
     Dates: start: 20171013, end: 20180405
  3. CELECOXIB. [Suspect]
     Active Substance: CELECOXIB
     Indication: AXIAL SPONDYLOARTHRITIS
     Route: 065
     Dates: start: 20180405

REACTIONS (1)
  - Appendicitis [Recovered/Resolved]

NARRATIVE: CASE EVENT DATE: 20180622
